FAERS Safety Report 9599934 (Version 1)
Quarter: 2013Q4

REPORT INFORMATION
  Report Type: Spontaneous
  Country: US (occurrence: US)
  Receive Date: 20131004
  Receipt Date: 20131004
  Transmission Date: 20140711
  Serious: No
  Sender: FDA-Public Use
  Company Number: US-AMGEN-USASP2013032000

PATIENT
  Age: 38 Year
  Sex: Female
  Weight: 72.56 kg

DRUGS (8)
  1. ENBREL [Suspect]
     Indication: PRODUCT USED FOR UNKNOWN INDICATION
     Dosage: 50 MG, QWK (AS DIRECTED)
  2. ALEVE [Concomitant]
     Dosage: 220 MG, UNK
  3. SYNTHROID [Concomitant]
     Dosage: 100 MUG, UNK
  4. FOLIC ACID [Concomitant]
     Dosage: 20 MG, UNK
  5. METHOTREXATE [Concomitant]
     Dosage: 2.5 MG, UNK
  6. MULTIVITAMINS, PLAIN [Concomitant]
     Dosage: UNK
  7. CALCIUM +D                         /00944201/ [Concomitant]
     Dosage: UNK
  8. FISH OIL [Concomitant]
     Dosage: UNK

REACTIONS (1)
  - Drug ineffective [Unknown]
